FAERS Safety Report 8026312-0 (Version None)
Quarter: 2012Q1

REPORT INFORMATION
  Report Type: 
  Country: None (occurrence: None)
  Receive Date: 20120105
  Receipt Date: 20111230
  Transmission Date: 20120608
  Serious: No
  Sender: FDA-Public Use
  Company Number: US-ABBOTT-11P-163-0887852-00

PATIENT

DRUGS (2)
  1. SYNTHROID [Suspect]
     Indication: HYPOTHYROIDISM
     Dates: start: 20111101
  2. SYNTHROID [Suspect]
     Dates: end: 20111101

REACTIONS (4)
  - LIVER FUNCTION TEST ABNORMAL [None]
  - MUSCULAR WEAKNESS [None]
  - BLOOD THYROID STIMULATING HORMONE ABNORMAL [None]
  - ASTHENIA [None]
